FAERS Safety Report 8696824 (Version 3)
Quarter: 2015Q1

REPORT INFORMATION
  Report Type: Report from Study
  Country: US (occurrence: US)
  Receive Date: 20120801
  Receipt Date: 20150211
  Transmission Date: 20150721
  Serious: Yes (Other)
  Sender: FDA-Public Use
  Company Number: US-ROCHE-1093637

PATIENT
  Sex: Female
  Weight: 78 kg

DRUGS (1)
  1. XOLAIR [Suspect]
     Active Substance: OMALIZUMAB
     Indication: ASTHMA
     Dosage: DILUENT:10 CC PRESERVATIVE FREE STERILE WATER FOR INJECTION, 3 CC SYRINGES, 18 GAUUGE AND 25 GAUGE N
     Route: 058

REACTIONS (1)
  - Peak expiratory flow rate decreased [Recovering/Resolving]
